FAERS Safety Report 9177794 (Version 1)
Quarter: 2012Q4

REPORT INFORMATION
  Report Type: 
  Country: US (occurrence: US)
  Receive Date: 20121015
  Receipt Date: 20121015
  Transmission Date: 20130627
  Serious: Yes (Hospitalization)
  Sender: FDA-Public Use
  Company Number: US-RB-045502-12

PATIENT
  Age: 66 Year
  Sex: Male

DRUGS (1)
  1. SUBOXONE TABLETS [Suspect]
     Indication: DRUG DEPENDENCE
     Route: 060

REACTIONS (1)
  - Myasthenia gravis [Not Recovered/Not Resolved]
